FAERS Safety Report 4712767-3 (Version None)
Quarter: 2005Q3

REPORT INFORMATION
  Report Type: 
  Country: None (occurrence: None)
  Receive Date: 20050701
  Receipt Date: 20050122
  Transmission Date: 20060218
  Serious: Yes (Other)
  Sender: FDA-Public Use
  Company Number: 2005018397

PATIENT
  Age: 56 Year
  Sex: Female
  Weight: 104.3273 kg

DRUGS (1)
  1. ZOLOFT [Suspect]
     Indication: DEPRESSION
     Dosage: 125 MG (1 IN 1 D), ORAL
     Route: 048
     Dates: start: 20040901

REACTIONS (1)
  - WEIGHT DECREASED [None]
